FAERS Safety Report 4582317-3 (Version None)
Quarter: 2005Q1

REPORT INFORMATION
  Report Type: 
  Country: None (occurrence: None)
  Receive Date: 20050118
  Receipt Date: 20040623
  Transmission Date: 20050727
  Serious: Yes (Life-Threatening, Hospitalization)
  Sender: FDA-Public Use
  Company Number: 371871

PATIENT
  Age: 9 Year
  Sex: Male

DRUGS (5)
  1. CEFTRIAXONE [Suspect]
     Indication: CATHETER RELATED INFECTION
  2. CEFTRIAXONE [Suspect]
     Indication: CENTRAL LINE INFECTION
  3. MERCAPTOPURINE [Concomitant]
  4. PREDNISONE TAB [Concomitant]
  5. SOLU-MEDROL [Concomitant]

REACTIONS (1)
  - HAEMOLYTIC ANAEMIA [None]
